FAERS Safety Report 17457734 (Version 11)
Quarter: 2021Q4

REPORT INFORMATION
  Report Type: Report from Study
  Country: US (occurrence: US)
  Receive Date: 20200225
  Receipt Date: 20211218
  Transmission Date: 20220303
  Serious: No
  Sender: FDA-Public Use
  Company Number: NVSC2020US053120

PATIENT
  Sex: Female
  Weight: 182 kg

DRUGS (1)
  1. COSENTYX [Suspect]
     Active Substance: SECUKINUMAB
     Indication: Product used for unknown indication
     Dosage: UNK
     Route: 065
     Dates: start: 20200414

REACTIONS (9)
  - Bronchitis [Unknown]
  - Cough [Unknown]
  - Illness [Unknown]
  - Alopecia [Unknown]
  - Skin exfoliation [Unknown]
  - Amnesia [Unknown]
  - Pruritus [Unknown]
  - Rash [Unknown]
  - Feeling hot [Unknown]
